FAERS Safety Report 18070503 (Version 1)
Quarter: 2020Q3

REPORT INFORMATION
  Report Type: Spontaneous
  Country: US (occurrence: US)
  Receive Date: 20200727
  Receipt Date: 20200727
  Transmission Date: 20201103
  Serious: Yes (Life-Threatening, Hospitalization, Other)
  Sender: FDA-Public Use
  Company Number: US-DRREDDYS-USA/USA/20/0125116

PATIENT
  Age: 25 Year
  Sex: Male

DRUGS (1)
  1. TESTOSTERONE INJECTABLE SUSPENSION [Suspect]
     Active Substance: TESTOSTERONE
     Indication: MUSCLE BUILDING THERAPY
     Dosage: SEVERAL YEARS FOR BODYBUILDING
     Route: 030

REACTIONS (8)
  - Renal infarct [Unknown]
  - Renal artery thrombosis [Unknown]
  - Coronary artery occlusion [Unknown]
  - Acute myocardial infarction [Unknown]
  - Drug abuse [Unknown]
  - Renal embolism [Unknown]
  - Coronary artery thrombosis [Unknown]
  - Drug level increased [Unknown]
